FAERS Safety Report 7067720-4 (Version None)
Quarter: 2010Q4

REPORT INFORMATION
  Report Type: 
  Country: None (occurrence: None)
  Receive Date: 20101028
  Receipt Date: 20101019
  Transmission Date: 20110411
  Serious: Yes (Other)
  Sender: FDA-Public Use
  Company Number: PHEH2009US02408

PATIENT

DRUGS (2)
  1. AREDIA [Suspect]
     Indication: METASTASES TO BONE
     Dosage: UNK
     Dates: end: 20060201
  2. FASLODEX [Concomitant]

REACTIONS (12)
  - ACTINIC ELASTOSIS [None]
  - ACTINIC KERATOSIS [None]
  - ACTINOMYCOSIS [None]
  - AMPUTATION [None]
  - BONE DISORDER [None]
  - DENTAL CARIES [None]
  - GANGRENE [None]
  - OSTEONECROSIS [None]
  - OSTEONECROSIS OF JAW [None]
  - PERIPHERAL VASCULAR DISORDER [None]
  - SKIN LESION [None]
  - VASCULITIS [None]
